FAERS Safety Report 17107482 (Version 1)
Quarter: 2019Q4

REPORT INFORMATION
  Report Type: Spontaneous
  Country: CN (occurrence: CN)
  Receive Date: 20191203
  Receipt Date: 20191203
  Transmission Date: 20200122
  Serious: Yes (Death, Hospitalization)
  Sender: FDA-Public Use
  Company Number: NVSC2019CN055962

PATIENT
  Age: 65 Year
  Sex: Male

DRUGS (3)
  1. ACYCLOVIR. [Suspect]
     Active Substance: ACYCLOVIR
     Indication: PAIN
     Dosage: 0.5 G, QD
     Route: 042
  2. DEXAMETHASONE. [Suspect]
     Active Substance: DEXAMETHASONE
     Indication: PAIN
     Dosage: 5 MG, QD
     Route: 065
  3. SANDOZ VALACYCLOVIR [Suspect]
     Active Substance: VALACYCLOVIR HYDROCHLORIDE
     Indication: HERPES ZOSTER
     Dosage: 0.3 G, BID
     Route: 048

REACTIONS (9)
  - Tremor [Fatal]
  - Product use in unapproved indication [Unknown]
  - Mental disorder [Fatal]
  - Gait disturbance [Fatal]
  - Hallucination [Fatal]
  - Overdose [Fatal]
  - Irritability [Fatal]
  - Altered state of consciousness [Fatal]
  - Lethargy [Fatal]
